FAERS Safety Report 7418660-X (Version None)
Quarter: 2011Q2

REPORT INFORMATION
  Report Type: 
  Country: None (occurrence: None)
  Receive Date: 20110415
  Receipt Date: 20110411
  Transmission Date: 20111010
  Serious: Yes (Hospitalization)
  Sender: FDA-Public Use
  Company Number: DE-BRISTOL-MYERS SQUIBB COMPANY-15642655

PATIENT
  Age: 74 Year
  Sex: Male
  Weight: 49 kg

DRUGS (4)
  1. CISPLATIN [Suspect]
     Indication: HEAD AND NECK CANCER
     Dosage: MOST RECENT DOSE ON 21MAR2011
     Route: 042
     Dates: start: 20110321
  2. DOCETAXEL [Suspect]
     Indication: HEAD AND NECK CANCER
     Dosage: DOCETAXEL IV INFUSION,MOST RECENT DOSE ON 21MAR2011
     Route: 042
     Dates: start: 20110321
  3. FLUOROURACIL [Suspect]
     Indication: HEAD AND NECK CANCER
     Dosage: FLUOROURACIL IV INFUSION,MOST RECENT DOSE ON 21MAR2011
     Route: 042
     Dates: start: 20110321
  4. CETUXIMAB [Suspect]
     Indication: HEAD AND NECK CANCER
     Dosage: MOST RECENT DOSE ON 21MAR2011,CETUXIMAB IV INFUSION
     Route: 042
     Dates: start: 20110321

REACTIONS (1)
  - PNEUMONIA ASPIRATION [None]
